FAERS Safety Report 16764494 (Version 2)
Quarter: 2019Q3

REPORT INFORMATION
  Report Type: Spontaneous
  Country: JP (occurrence: JP)
  Receive Date: 20190902
  Receipt Date: 20190916
  Transmission Date: 20191005
  Serious: Yes (Hospitalization, Other)
  Sender: FDA-Public Use
  Company Number: JP-009507513-1908JPN002940J

PATIENT
  Age: 70 Year
  Sex: Male
  Weight: 68 kg

DRUGS (7)
  1. KEYTRUDA [Suspect]
     Active Substance: PEMBROLIZUMAB
     Indication: NON-SMALL CELL LUNG CANCER
     Dosage: 200 MILLIGRAM, Q3W
     Route: 041
     Dates: start: 20190807, end: 20190807
  2. ABRAXANE [Suspect]
     Active Substance: PACLITAXEL
     Indication: NON-SMALL CELL LUNG CANCER
     Dosage: 190 MILLIGRAM,TWICE IN 3 WEEKS
     Route: 041
     Dates: start: 20190807, end: 20190814
  3. CARBOPLATIN. [Suspect]
     Active Substance: CARBOPLATIN
     Indication: NON-SMALL CELL LUNG CANCER
     Dosage: 460 MILLIGRAM, Q3W
     Route: 041
     Dates: start: 20190807, end: 20190807
  4. ALOXI [Concomitant]
     Active Substance: PALONOSETRON HYDROCHLORIDE
     Indication: PROPHYLAXIS
     Dosage: 0.75 MILLIGRAM, QD
     Route: 041
     Dates: start: 20190807, end: 20190807
  5. DEXART [Concomitant]
     Active Substance: DEXAMETHASONE SODIUM PHOSPHATE
     Indication: PROPHYLAXIS
     Dosage: 6.6 MILLIGRAM, QD
     Route: 041
     Dates: start: 20190807, end: 20190807
  6. TALION [Concomitant]
     Indication: PSORIASIS
     Dosage: 10 MILLIGRAM, BID
     Route: 048
     Dates: end: 20190910
  7. TIGASON [Concomitant]
     Indication: PSORIASIS
     Dosage: 10 MILLIGRAM, QD
     Route: 048
     Dates: end: 20190910

REACTIONS (2)
  - Hyperthyroidism [Recovering/Resolving]
  - Loss of consciousness [Recovered/Resolved]

NARRATIVE: CASE EVENT DATE: 20190828
